FAERS Safety Report 8963183 (Version 1)
Quarter: 2012Q4

REPORT INFORMATION
  Report Type: 
  Country: IE (occurrence: IE)
  Receive Date: 20121213
  Receipt Date: 20121213
  Transmission Date: 20130627
  Serious: Yes (Hospitalization)
  Sender: FDA-Public Use
  Company Number: IE-PFIZER INC-2012306455

PATIENT
  Age: 69 Year
  Sex: Female

DRUGS (2)
  1. CARBOPLATIN [Suspect]
     Indication: SMALL CELL LUNG CANCER LIMITED STAGE
     Dosage: on day 1 of a 21-day cycle
  2. ETOPOSIDE [Suspect]
     Indication: SMALL CELL LUNG CANCER LIMITED STAGE
     Dosage: on days 1, 2 and 3 of a 21-day cycle

REACTIONS (1)
  - Posterior reversible encephalopathy syndrome [Recovered/Resolved]
